FAERS Safety Report 16826313 (Version 1)
Quarter: 2019Q4

REPORT INFORMATION
  Report Type: Spontaneous
  Country: US (occurrence: US)
  Receive Date: 20190918
  Receipt Date: 20190918
  Transmission Date: 20200122
  Serious: Yes (Other)
  Sender: FDA-Public Use
  Company Number: None

PATIENT
  Age: 7 Year
  Sex: Male
  Weight: 22.5 kg

DRUGS (2)
  1. CONCERTA [Suspect]
     Active Substance: METHYLPHENIDATE HYDROCHLORIDE
     Indication: ATTENTION DEFICIT/HYPERACTIVITY DISORDER
     Dosage: ?          QUANTITY:1 TABLET(S);?
     Route: 048
     Dates: start: 20190813, end: 20190819
  2. CHILDREN^S MULTI-VITAMIN [Concomitant]

REACTIONS (6)
  - Sleep disorder [None]
  - Eating disorder [None]
  - Product substitution issue [None]
  - Depressed mood [None]
  - Urinary incontinence [None]
  - Anxiety [None]

NARRATIVE: CASE EVENT DATE: 20190819
